FAERS Safety Report 7146378-X (Version None)
Quarter: 2010Q4

REPORT INFORMATION
  Report Type: 
  Country: None (occurrence: None)
  Receive Date: 20101208
  Receipt Date: 20100412
  Transmission Date: 20110411
  Serious: No
  Sender: FDA-Public Use
  Company Number: US-BRISTOL-MYERS SQUIBB COMPANY-14983134

PATIENT
  Age: 72 Year
  Sex: Female
  Weight: 71 kg

DRUGS (21)
  1. PRAVACHOL [Suspect]
  2. SOTALOL HCL [Suspect]
  3. PLAVIX [Suspect]
  4. COLD REMEDY [Suspect]
     Indication: NASOPHARYNGITIS
     Dosage: GEL SWABS INITIATED A YR AGO
  5. DARVOCET [Suspect]
  6. TRICOR [Suspect]
  7. NITRO-DUR [Suspect]
  8. METOCLOPRAMIDE [Suspect]
  9. SYNTHROID [Suspect]
  10. AMITRIPTYLINE [Suspect]
  11. LORAZEPAM [Suspect]
  12. EFFEXOR [Suspect]
  13. DIGOXIN [Suspect]
  14. NITROGLYCERIN [Suspect]
  15. COMBIVENT [Suspect]
     Route: 055
  16. EVISTA [Suspect]
  17. CALCIUM [Suspect]
  18. VITAMIN D [Suspect]
  19. OXYGEN [Suspect]
  20. SKELAXIN [Suspect]
  21. KLOR-CON [Suspect]

REACTIONS (1)
  - ANOSMIA [None]
